FAERS Safety Report 15325171 (Version 1)
Quarter: 2018Q3

REPORT INFORMATION
  Report Type: Report from Study
  Country: AU (occurrence: AU)
  Receive Date: 20180828
  Receipt Date: 20180828
  Transmission Date: 20181010
  Serious: Yes (Other)
  Sender: FDA-Public Use
  Company Number: AU-MYLANLABS-2018M1063463

PATIENT
  Sex: Male

DRUGS (1)
  1. CLOZARIL [Suspect]
     Active Substance: CLOZAPINE
     Indication: SCHIZOPHRENIA
     Dosage: 350 MG, UNK
     Route: 048
     Dates: start: 20160222

REACTIONS (8)
  - Body temperature abnormal [Unknown]
  - Swelling face [Unknown]
  - Liver disorder [Unknown]
  - Anxiety [Unknown]
  - Vomiting [Unknown]
  - Fatigue [Unknown]
  - Depression [Unknown]
  - Cardiac discomfort [Unknown]
